FAERS Safety Report 7452167-9 (Version None)
Quarter: 2011Q2

REPORT INFORMATION
  Report Type: 
  Country: None (occurrence: None)
  Receive Date: 20110502
  Receipt Date: 20110428
  Transmission Date: 20111010
  Serious: Yes (Death)
  Sender: FDA-Public Use
  Company Number: TR-PFIZER INC-2011087636

PATIENT
  Age: 67 Year
  Sex: Male

DRUGS (2)
  1. SULPERAZON [Suspect]
     Dosage: UNK
     Route: 042
     Dates: start: 20090923, end: 20090928
  2. IMIPENEM [Suspect]
     Dosage: 300 X 4
     Route: 042
     Dates: start: 20090928

REACTIONS (1)
  - HAEMORRHAGE INTRACRANIAL [None]
